FAERS Safety Report 7453891-4 (Version None)
Quarter: 2011Q2

REPORT INFORMATION
  Report Type: 
  Country: None (occurrence: None)
  Receive Date: 20110502
  Receipt Date: 20110422
  Transmission Date: 20111010
  Serious: Yes (Other)
  Sender: FDA-Public Use
  Company Number: US-BAYER-2011-035489

PATIENT
  Age: 52 Year
  Sex: Female

DRUGS (2)
  1. CLONIDINE [Concomitant]
  2. AVELOX [Suspect]
     Indication: RESPIRATORY TRACT INFECTION
     Dosage: 400 MG, QD
     Route: 048
     Dates: start: 20110419, end: 20110419

REACTIONS (3)
  - URTICARIA [None]
  - ANAPHYLACTIC SHOCK [None]
  - DYSPNOEA [None]
